FAERS Safety Report 9663756 (Version 35)
Quarter: 2016Q2

REPORT INFORMATION
  Report Type: Report from Study
  Country: CA (occurrence: CA)
  Receive Date: 20131101
  Receipt Date: 20160426
  Transmission Date: 20160815
  Serious: Yes (Hospitalization, Other)
  Sender: FDA-Public Use
  Company Number: PHHY2013CA118879

PATIENT
  Age: 80 Year
  Sex: Male

DRUGS (6)
  1. SANDOSTATIN LAR DEPOT [Suspect]
     Active Substance: OCTREOTIDE ACETATE
     Dosage: 30 MG, TIW (EVERY 3 WEEKS)
     Route: 030
  2. SANDOSTATIN [Suspect]
     Active Substance: OCTREOTIDE ACETATE
     Indication: CARCINOID TUMOUR OF THE SMALL BOWEL
     Dosage: QD
     Route: 058
  3. CELEBREX [Concomitant]
     Active Substance: CELECOXIB
     Indication: PRODUCT USED FOR UNKNOWN INDICATION
     Route: 065
  4. SANDOSTATIN [Suspect]
     Active Substance: OCTREOTIDE ACETATE
     Dosage: 150 UG, BID
     Route: 058
     Dates: start: 20131009, end: 20131109
  5. LIPITOR [Concomitant]
     Active Substance: ATORVASTATIN CALCIUM
     Indication: PRODUCT USED FOR UNKNOWN INDICATION
     Route: 065
  6. SANDOSTATIN LAR DEPOT [Suspect]
     Active Substance: OCTREOTIDE ACETATE
     Indication: CARCINOID TUMOUR OF THE SMALL BOWEL
     Dosage: 30 MG, QMO
     Route: 030
     Dates: start: 20131107

REACTIONS (49)
  - Concomitant disease aggravated [Unknown]
  - Stress [Unknown]
  - Nasal polyps [Unknown]
  - Oedema [Recovering/Resolving]
  - Heart rate irregular [Unknown]
  - Needle issue [Unknown]
  - Intestinal obstruction [Recovering/Resolving]
  - Arthritis [Unknown]
  - Gastrointestinal disorder [Unknown]
  - Haematoma [Unknown]
  - Injury [Unknown]
  - Atrial fibrillation [Unknown]
  - Memory impairment [Unknown]
  - Occult blood [Unknown]
  - Inappropriate schedule of drug administration [Unknown]
  - Dyspnoea [Recovered/Resolved]
  - Feeling abnormal [Unknown]
  - Blood pressure diastolic decreased [Unknown]
  - Ageusia [Unknown]
  - Blood pressure systolic increased [Unknown]
  - Confusional state [Not Recovered/Not Resolved]
  - Injection site swelling [Unknown]
  - Joint injury [Unknown]
  - Platelet count decreased [Unknown]
  - Abdominal pain lower [Unknown]
  - Heart rate decreased [Unknown]
  - Wrong technique in product usage process [Unknown]
  - Cardiac valve disease [Unknown]
  - Asthenia [Unknown]
  - Hypotension [Unknown]
  - Body temperature decreased [Unknown]
  - Hepatic enzyme increased [Unknown]
  - Injection site mass [Unknown]
  - Diarrhoea [Recovering/Resolving]
  - Injection site pain [Unknown]
  - Gastrointestinal haemorrhage [Unknown]
  - Dizziness [Unknown]
  - Weight decreased [Unknown]
  - Epistaxis [Unknown]
  - Diarrhoea haemorrhagic [Unknown]
  - Poor quality sleep [Unknown]
  - Haemorrhoids [Unknown]
  - Injection site bruising [Unknown]
  - Injection site induration [Unknown]
  - Injection site oedema [Unknown]
  - Cardiac murmur [Unknown]
  - Haemoglobin decreased [Unknown]
  - Fall [Unknown]
  - Contusion [Recovering/Resolving]

NARRATIVE: CASE EVENT DATE: 2014
